FAERS Safety Report 4855369-0 (Version None)
Quarter: 2005Q4

REPORT INFORMATION
  Report Type: 
  Country: None (occurrence: None)
  Receive Date: 20051125
  Receipt Date: 20041220
  Transmission Date: 20060501
  Serious: Yes (Hospitalization)
  Sender: FDA-Public Use
  Company Number: ATO-04-0971

PATIENT
  Age: 50 Year
  Sex: Male

DRUGS (6)
  1. TRISENOX [Suspect]
     Indication: ACUTE PROMYELOCYTIC LEUKAEMIA
     Dosage: IVI
  2. ONDANSETRON [Concomitant]
  3. ALLOPURINOL [Concomitant]
  4. SIMVASTATIN [Concomitant]
  5. METOPROLOL [Concomitant]
  6. EZETIMIDE [Concomitant]

REACTIONS (1)
  - ELECTROCARDIOGRAM QT PROLONGED [None]
